FAERS Safety Report 8135544 (Version 6)
Quarter: 2013Q2

REPORT INFORMATION
  Report Type: Spontaneous
  Country: US (occurrence: US)
  Receive Date: 20110914
  Receipt Date: 20130508
  Transmission Date: 20140414
  Serious: Yes (Other)
  Sender: FDA-Public Use
  Company Number: US-ROCHE-801858

PATIENT
  Age: 26 Year
  Sex: Male
  Weight: 72.64 kg

DRUGS (1)
  1. ACCUTANE [Suspect]
     Indication: ACNE
     Route: 065
     Dates: start: 200012, end: 20011204

REACTIONS (8)
  - Colitis ulcerative [Unknown]
  - Inflammatory bowel disease [Unknown]
  - Pancreatitis [Unknown]
  - Depression [Not Recovered/Not Resolved]
  - Injury [Unknown]
  - Large intestine polyp [Unknown]
  - Clostridium difficile colitis [Unknown]
  - Paronychia [Unknown]
